FAERS Safety Report 6088706-2 (Version None)
Quarter: 2009Q1

REPORT INFORMATION
  Report Type: 
  Country: None (occurrence: None)
  Receive Date: 20090224
  Receipt Date: 20090210
  Transmission Date: 20090719
  Serious: Yes (Hospitalization)
  Sender: FDA-Public Use
  Company Number: IN-NOVOPROD-282005

PATIENT
  Sex: Male
  Weight: 81.5 kg

DRUGS (3)
  1. MIXTARD 30 HM(GE) 333 IU/ML [Suspect]
     Indication: TYPE 2 DIABETES MELLITUS
     Dosage: 48 IU, QD
     Route: 058
     Dates: start: 20080821, end: 20081119
  2. STAMLO                             /00972401/ [Concomitant]
     Indication: HYPERTENSION
     Dosage: 5 MG, QD
     Route: 048
     Dates: start: 20061104
  3. AMLODIPINE [Concomitant]
     Indication: HYPERTENSION
     Dosage: 5 MG, QD
     Route: 048
     Dates: start: 20061104

REACTIONS (1)
  - RENAL FAILURE [None]
